FAERS Safety Report 14559100 (Version 1)
Quarter: 2018Q1

REPORT INFORMATION
  Report Type: Report from Study
  Country: DE (occurrence: DE)
  Receive Date: 20180221
  Receipt Date: 20180221
  Transmission Date: 20180509
  Serious: Yes (Hospitalization)
  Sender: FDA-Public Use
  Company Number: DE-TEVA-2018-DE-858369

PATIENT
  Age: 77 Year
  Sex: Male
  Weight: 73 kg

DRUGS (13)
  1. REVLIMID [Suspect]
     Active Substance: LENALIDOMIDE
     Indication: PLASMA CELL MYELOMA
     Dosage: 10 MILLIGRAM
     Route: 048
     Dates: start: 20170704
  2. BUDAIAIR [Concomitant]
     Indication: CHRONIC OBSTRUCTIVE PULMONARY DISEASE
     Dosage: 400 MICROGRAM DAILY; 400 MICROGRAM
     Route: 055
  3. COTRIUM [Concomitant]
     Indication: PROPHYLAXIS
     Dosage: 480 MILLIGRAM DAILY; 480 MILLIGRAM
     Route: 048
     Dates: start: 20170703, end: 20171207
  4. PANTOZOL [Concomitant]
     Active Substance: PANTOPRAZOLE SODIUM
     Indication: PROPHYLAXIS
     Dosage: 20 MILLIGRAM DAILY; 20 MILLIGRAM
     Route: 048
     Dates: start: 201707
  5. ASS RATIOPHARM [Concomitant]
     Active Substance: ASPIRIN
     Indication: PROPHYLAXIS
     Dosage: 100 MILLIGRAM DAILY; 100 MILLIGRAM
     Route: 048
     Dates: start: 20170703
  6. ZOLEDRON [Concomitant]
     Active Substance: ZOLEDRONIC ACID
     Indication: PROPHYLAXIS
     Dosage: 4 MILLIGRAM DAILY; .1333 MILLIGRAM
     Route: 041
     Dates: start: 20170703
  7. IDEOS [Concomitant]
     Active Substance: CALCIUM CARBONATE\CHOLECALCIFEROL
     Indication: PROPHYLAXIS
     Dosage: 500 MILLIGRAM DAILY; 500 MILLIGRAM
     Route: 048
     Dates: start: 20170802
  8. OXYCODON [Concomitant]
     Active Substance: OXYCODONE
     Indication: CHRONIC OBSTRUCTIVE PULMONARY DISEASE
     Dosage: 40 MILLIGRAM DAILY; 40 MILLIGRAM
     Route: 048
  9. DEXAMETHASONE. [Suspect]
     Active Substance: DEXAMETHASONE
     Indication: PLASMA CELL MYELOMA
     Route: 065
     Dates: start: 20170704
  10. HCT-RATIOPHARM [Concomitant]
     Indication: HYPERTENSION
     Dosage: 25 MILLIGRAM DAILY; 25 MILLIGRAM
     Route: 048
  11. OXYCODON [Concomitant]
     Active Substance: OXYCODONE
     Dosage: 90 MILLIGRAM DAILY; 90 MILLIGRAM
     Route: 048
     Dates: start: 20161012, end: 20171016
  12. SEREVENT DISKUS [Concomitant]
     Active Substance: SALMETEROL XINAFOATE
     Indication: CHRONIC OBSTRUCTIVE PULMONARY DISEASE
     Dosage: 50 MICROGRAM DAILY; 25 MILLIGRAM
     Route: 055
  13. VERAPAMIL [Concomitant]
     Active Substance: VERAPAMIL HYDROCHLORIDE
     Indication: HYPERTENSION
     Dosage: 480 MILLIGRAM DAILY; 25 MILLIGRAM
     Route: 048

REACTIONS (2)
  - Lymphoedema [Not Recovered/Not Resolved]
  - Arthralgia [Not Recovered/Not Resolved]

NARRATIVE: CASE EVENT DATE: 20171012
